FAERS Safety Report 8198630-7 (Version None)
Quarter: 2012Q1

REPORT INFORMATION
  Report Type: 
  Country: None (occurrence: None)
  Receive Date: 20120309
  Receipt Date: 20120301
  Transmission Date: 20120608
  Serious: Yes (Hospitalization, Other)
  Sender: FDA-Public Use
  Company Number: PHHY2012CH018309

PATIENT
  Age: 67 Year
  Sex: Female

DRUGS (2)
  1. VITAMIN D [Concomitant]
  2. AREDIA [Suspect]
     Route: 042

REACTIONS (2)
  - PATHOLOGICAL FRACTURE [None]
  - FALL [None]
